FAERS Safety Report 9570926 (Version 3)
Quarter: 2013Q4

REPORT INFORMATION
  Report Type: Spontaneous
  Country: US (occurrence: None)
  Receive Date: 20130927
  Receipt Date: 20131121
  Transmission Date: 20140711
  Serious: Yes (Other)
  Sender: FDA-Public Use
  Company Number: AUR-APL-2013-07987

PATIENT
  Sex: Female
  Weight: 94.35 kg

DRUGS (3)
  1. GABAPENTIN [Suspect]
     Indication: DIABETIC NEUROPATHY
     Dosage: 900 MG ( 300 MG, 3 IN 1 D)
     Route: 048
  2. LANTUS [Concomitant]
  3. METFORMIN (METFORMIN) [Concomitant]

REACTIONS (3)
  - Diabetic neuropathy [None]
  - Drug effect decreased [None]
  - Arthropathy [None]
